FAERS Safety Report 9092637 (Version 1)
Quarter: 2013Q1

REPORT INFORMATION
  Report Type: Spontaneous
  Country: US (occurrence: None)
  Receive Date: 20130213
  Receipt Date: 20130213
  Transmission Date: 20140127
  Serious: Yes (Death)
  Sender: FDA-Public Use
  Company Number: None

PATIENT
  Age: 91 Year
  Sex: Female

DRUGS (1)
  1. DIGOXIN [Suspect]
     Indication: ATRIAL FIBRILLATION
     Route: 048
     Dates: start: 20130117, end: 20130124

REACTIONS (12)
  - Renal failure acute [None]
  - Nausea [None]
  - Dizziness [None]
  - Chest discomfort [None]
  - Electrocardiogram ST segment depression [None]
  - Cardioactive drug level above therapeutic [None]
  - General physical health deterioration [None]
  - Shock [None]
  - Toxicity to various agents [None]
  - Atrioventricular block first degree [None]
  - Gastrointestinal haemorrhage [None]
  - Cardiogenic shock [None]
